FAERS Safety Report 15110356 (Version 2)
Quarter: 2018Q3

REPORT INFORMATION
  Report Type: Spontaneous
  Country: GB (occurrence: GB)
  Receive Date: 20180705
  Receipt Date: 20180726
  Transmission Date: 20181010
  Serious: Yes (Other)
  Sender: FDA-Public Use
  Company Number: GB-AMGEN-GBRSP2018089377

PATIENT
  Age: 28 Year
  Sex: Female

DRUGS (7)
  1. ARANESP [Suspect]
     Active Substance: DARBEPOETIN ALFA
     Indication: ANAEMIA
     Dosage: 25 MUG, QWK
     Route: 065
     Dates: start: 20131217
  2. ARANESP [Suspect]
     Active Substance: DARBEPOETIN ALFA
     Indication: CHRONIC KIDNEY DISEASE
     Dosage: 50 MUG, QWK
     Route: 065
  3. ALFACALCIDOL [Concomitant]
     Active Substance: ALFACALCIDOL
     Dosage: UNK
  4. ENOXAPARIN [Concomitant]
     Active Substance: ENOXAPARIN
     Indication: PROPHYLAXIS
     Dosage: UNK
  5. CALCIUM ACETATE. [Concomitant]
     Active Substance: CALCIUM ACETATE
     Dosage: UNK
  6. ARANESP [Suspect]
     Active Substance: DARBEPOETIN ALFA
     Indication: END STAGE RENAL DISEASE
  7. FOLIC ACID. [Concomitant]
     Active Substance: FOLIC ACID
     Dosage: UNK

REACTIONS (7)
  - Polyhydramnios [Not Recovered/Not Resolved]
  - Premature delivery [Unknown]
  - Therapy partial responder [Unknown]
  - Peritonitis [Recovered/Resolved]
  - Blood albumin decreased [Unknown]
  - Haemoglobin decreased [Unknown]
  - Maternal exposure during pregnancy [Unknown]
